FAERS Safety Report 9997588 (Version 1)
Quarter: 2014Q1

REPORT INFORMATION
  Report Type: Spontaneous
  Country: US (occurrence: US)
  Receive Date: 20140311
  Receipt Date: 20140311
  Transmission Date: 20141002
  Serious: Yes (Other)
  Sender: FDA-Public Use
  Company Number: US-BRISTOL-MYERS SQUIBB COMPANY-20353868

PATIENT
  Age: 75 Year
  Sex: Male
  Weight: 97.5 kg

DRUGS (8)
  1. ELIQUIS [Suspect]
  2. METOPROLOL TARTRATE [Concomitant]
  3. GABAPENTIN [Concomitant]
  4. PANTOPRAZOLE SODIUM [Concomitant]
     Dosage: PANTOPRAZOLE SOD DR
  5. ATORVASTATIN [Concomitant]
     Dosage: ATORVASTATIN 40MG 1/2 TABLET QHS.
  6. ULTRAM [Concomitant]
  7. FLEXERIL [Concomitant]
  8. ALEVE [Concomitant]

REACTIONS (4)
  - Cardiac disorder [Unknown]
  - Rash [Unknown]
  - Pruritus [Unknown]
  - Contusion [Unknown]
